FAERS Safety Report 5338273-3 (Version None)
Quarter: 2007Q2

REPORT INFORMATION
  Report Type: 
  Country: None (occurrence: None)
  Receive Date: 20070327
  Receipt Date: 20070212
  Transmission Date: 20071010
  Serious: Yes (Hospitalization)
  Sender: FDA-Public Use
  Company Number: 229358

PATIENT
  Age: 52 Year
  Sex: Female
  Weight: 55.8 kg

DRUGS (4)
  1. AVASTIN [Suspect]
     Indication: COLON CANCER
     Dosage: 7.5 G/KG, Q2W
     Dates: start: 20060502
  2. FLUOROURACIL [Concomitant]
  3. LEUCOVORIN CALCIUM [Concomitant]
  4. OXALIPLATIN [Concomitant]

REACTIONS (2)
  - GASTROINTESTINAL PERFORATION [None]
  - SEPTIC SHOCK [None]
